FAERS Safety Report 23192467 (Version 3)
Quarter: 2023Q4

REPORT INFORMATION
  Report Type: Report from Study
  Country: BR (occurrence: None)
  Receive Date: 20231116
  Receipt Date: 20231129
  Transmission Date: 20240109
  Serious: Yes (Hospitalization)
  Sender: FDA-Public Use
  Company Number: BR-ROCHE-3456083

PATIENT
  Age: 65 Year
  Sex: Male
  Weight: 78.8 kg

DRUGS (20)
  1. ATEZOLIZUMAB [Suspect]
     Active Substance: ATEZOLIZUMAB
     Indication: Lung squamous cell carcinoma metastatic
     Dosage: START DATE OF MOST RECENT DOSE OF STUDY DRUG PRIOR TO AE/SAE 31/AUG/2023 1:07 PM/1:37 PM
     Route: 041
     Dates: start: 20230720
  2. ATEZOLIZUMAB [Suspect]
     Active Substance: ATEZOLIZUMAB
     Indication: Lung squamous cell carcinoma metastatic
     Dosage: START DATE OF MOST RECENT DOSE OF STUDY DRUG PRIOR TO AE 01/NOV/2023 2:05 PM
     Route: 058
     Dates: start: 20230519
  3. IPRATROPIUM BROMIDE [Concomitant]
     Active Substance: IPRATROPIUM BROMIDE\IPRATROPIUM BROMIDE ANHYDROUS
     Indication: Chronic obstructive pulmonary disease
     Dosage: 40 OTHER
     Route: 055
     Dates: start: 2019
  4. CHOLECALCIFEROL [Concomitant]
     Active Substance: CHOLECALCIFEROL
     Route: 048
     Dates: start: 2020
  5. ESOMEPRAZOLE MAGNESIUM [Concomitant]
     Active Substance: ESOMEPRAZOLE\ESOMEPRAZOLE MAGNESIUM\ESOMEPRAZOLE MAGNESIUM DIHYDRATE
     Indication: Dyspepsia
     Route: 048
     Dates: start: 2022
  6. CODEINE PHOSPHATE [Concomitant]
     Active Substance: CODEINE PHOSPHATE
     Indication: Cough
     Route: 048
     Dates: start: 202208
  7. OXYCODONE HYDROCHLORIDE\OXYCODONE TEREPHTHALATE [Concomitant]
     Active Substance: OXYCODONE HYDROCHLORIDE\OXYCODONE TEREPHTHALATE
     Indication: Nasal congestion
     Dosage: 2 OTHER
     Route: 045
     Dates: start: 202302
  8. LIDOCAINE [Concomitant]
     Active Substance: LIDOCAINE
     Indication: Chest pain
     Route: 061
     Dates: start: 20230524
  9. HYPROMELLOSES [Concomitant]
     Active Substance: HYPROMELLOSES
     Dosage: 1 OTHER
     Route: 047
     Dates: start: 20230518
  10. GABAPENTIN [Concomitant]
     Active Substance: GABAPENTIN
     Indication: Chest pain
     Route: 048
     Dates: start: 20230713
  11. AMITRIPTYLINE [Concomitant]
     Active Substance: AMITRIPTYLINE
     Indication: Chest pain
     Dates: start: 20230629
  12. SODIUM CHLORIDE [Concomitant]
     Active Substance: SODIUM CHLORIDE
     Indication: Nasal congestion
     Dosage: 2 PUFF
     Route: 045
     Dates: start: 20230713
  13. LORATADINE [Concomitant]
     Active Substance: LORATADINE
     Indication: Pruritus
     Route: 048
     Dates: start: 20230629
  14. LORATADINE [Concomitant]
     Active Substance: LORATADINE
     Indication: Injection related reaction
     Route: 048
     Dates: start: 20230922
  15. BETAMETHASONE [Concomitant]
     Active Substance: BETAMETHASONE\BETAMETHASONE DIPROPIONATE
     Indication: Pruritus
     Dosage: 1 OTHER
     Route: 061
     Dates: start: 20230923
  16. METOCLOPRAMIDE [Concomitant]
     Active Substance: METOCLOPRAMIDE
     Route: 042
     Dates: start: 20231108, end: 20231108
  17. METOCLOPRAMIDE [Concomitant]
     Active Substance: METOCLOPRAMIDE
     Route: 042
     Dates: start: 20231109, end: 20231109
  18. DOMPERIDONE [Concomitant]
     Active Substance: DOMPERIDONE
     Route: 042
     Dates: start: 20231109, end: 20231109
  19. OMEPRAZOLE [Concomitant]
     Active Substance: OMEPRAZOLE
     Route: 042
     Dates: start: 20231109, end: 20231109
  20. SIMETHICONE (DIMETHICONE) [Concomitant]
     Active Substance: DIMETHICONE
     Route: 048
     Dates: start: 20231109, end: 20231109

REACTIONS (1)
  - Pneumonia [Recovering/Resolving]

NARRATIVE: CASE EVENT DATE: 20231108
